FAERS Safety Report 5144759-7 (Version None)
Quarter: 2006Q4

REPORT INFORMATION
  Report Type: 
  Country: None (occurrence: None)
  Receive Date: 20060905
  Receipt Date: 20060509
  Transmission Date: 20070319
  Serious: No
  Sender: FDA-Public Use
  Company Number: 34777

PATIENT
  Age: 24 Year
  Sex: Female

DRUGS (4)
  1. NEVANAC [Suspect]
     Indication: PROPHYLAXIS
     Dates: start: 20060209, end: 20060214
  2. RESTASIS [Concomitant]
  3. PRED FORTE [Concomitant]
  4. ZYMAR [Concomitant]

REACTIONS (3)
  - GLARE [None]
  - HALO VISION [None]
  - VISUAL ACUITY REDUCED [None]
